FAERS Safety Report 13278166 (Version 2)
Quarter: 2017Q1

REPORT INFORMATION
  Report Type: Spontaneous
  Country: US (occurrence: US)
  Receive Date: 20170228
  Receipt Date: 20170228
  Transmission Date: 20170428
  Serious: Yes (Other)
  Sender: FDA-Public Use
  Company Number: US-TEIKOKU PHARMA USA-TPU2017-00111

PATIENT
  Age: 63 Year
  Weight: 77.18 kg

DRUGS (7)
  1. LISINOPRIL/HCTZ [Concomitant]
     Active Substance: HYDROCHLOROTHIAZIDE\LISINOPRIL
     Indication: BLOOD PRESSURE MEASUREMENT
     Dosage: 10/12.5MG
     Route: 048
  2. ASPIRIN. [Concomitant]
     Active Substance: ASPIRIN
     Indication: ANTIPHOSPHOLIPID SYNDROME
     Route: 048
     Dates: start: 2013
  3. METRONIDAZOLE. [Concomitant]
     Active Substance: METRONIDAZOLE
     Indication: ERYTHEMA
     Dosage: APPLY TO SKIN TWICE DAILY
     Dates: start: 20160201
  4. LIDODERM [Suspect]
     Active Substance: LIDOCAINE
     Indication: ARTHRITIS
     Route: 061
     Dates: start: 201406
  5. TRIAMCINOLONE [Concomitant]
     Active Substance: TRIAMCINOLONE
     Indication: PRURITUS
     Dosage: APPLY TO BACK TWICE DAILY
     Dates: start: 20161230
  6. VOLTAREN [Concomitant]
     Active Substance: DICLOFENAC SODIUM
     Indication: ARTHRITIS
     Dates: start: 2014
  7. VALTREX [Concomitant]
     Active Substance: VALACYCLOVIR HYDROCHLORIDE
     Indication: RASH

REACTIONS (2)
  - Knee operation [Unknown]
  - Arthralgia [Unknown]

NARRATIVE: CASE EVENT DATE: 201506
